FAERS Safety Report 7410764-0 (Version None)
Quarter: 2011Q2

REPORT INFORMATION
  Report Type: 
  Country: None (occurrence: None)
  Receive Date: 20110413
  Receipt Date: 20110331
  Transmission Date: 20111010
  Serious: Yes (Hospitalization)
  Sender: FDA-Public Use
  Company Number: US-ELI_LILLY_AND_COMPANY-US201006000080

PATIENT
  Sex: Female

DRUGS (14)
  1. FUROSEMIDE [Concomitant]
  2. SOMA [Concomitant]
  3. FORTEO [Suspect]
     Indication: OSTEOPOROSIS
     Dosage: 20 UG, DAILY (1/D)
  4. TERAZOSIN HCL [Concomitant]
  5. URISPAS [Concomitant]
  6. XANAX [Concomitant]
  7. PROCARDIA [Concomitant]
  8. ASPIRIN [Concomitant]
  9. VITAMINS [Concomitant]
  10. DEPAKOTE [Concomitant]
  11. LISINOPRIL [Concomitant]
  12. FORTEO [Suspect]
     Dosage: 20 UG, QD
  13. HYDROCODONE [Concomitant]
  14. ALLEGRA [Concomitant]

REACTIONS (9)
  - PAIN [None]
  - PAIN IN EXTREMITY [None]
  - LIVING IN RESIDENTIAL INSTITUTION [None]
  - SLEEP DISORDER DUE TO A GENERAL MEDICAL CONDITION [None]
  - INTENTIONAL DRUG MISUSE [None]
  - FUNGAL SKIN INFECTION [None]
  - RASH ERYTHEMATOUS [None]
  - INJECTION SITE HAEMATOMA [None]
  - DRUG ADMINISTERED AT INAPPROPRIATE SITE [None]
